FAERS Safety Report 24844324 (Version 1)
Quarter: 2025Q1

REPORT INFORMATION
  Report Type: Report from Study
  Country: CN (occurrence: CN)
  Receive Date: 20250115
  Receipt Date: 20250115
  Transmission Date: 20250409
  Serious: Yes (Hospitalization)
  Sender: ROCHE
  Company Number: CN-ROCHE-10000175540

PATIENT
  Age: 46 Year
  Sex: Female

DRUGS (1)
  1. VABYSMO [Suspect]
     Active Substance: FARICIMAB-SVOA
     Indication: Age-related macular degeneration
     Route: 031
     Dates: start: 202408, end: 20250108

REACTIONS (2)
  - Vitrectomy [Unknown]
  - Drug ineffective [Unknown]

NARRATIVE: CASE EVENT DATE: 20241124
